FAERS Safety Report 15975031 (Version 2)
Quarter: 2019Q1

REPORT INFORMATION
  Report Type: Spontaneous
  Country: US (occurrence: US)
  Receive Date: 20190218
  Receipt Date: 20190326
  Transmission Date: 20190418
  Serious: No
  Sender: FDA-Public Use
  Company Number: US-PFIZER INC-2018358388

PATIENT
  Age: 71 Year
  Sex: Female
  Weight: 102 kg

DRUGS (4)
  1. SKELAXIN [Suspect]
     Active Substance: METAXALONE
     Indication: NEURALGIA
  2. SKELAXIN [Suspect]
     Active Substance: METAXALONE
     Indication: SPONDYLOLISTHESIS
     Dosage: 800 MG, 2X/DAY
  3. SKELAXIN [Suspect]
     Active Substance: METAXALONE
     Indication: INTERVERTEBRAL DISC DISORDER
     Dosage: 800 MG, 3X/DAY(800MG CAPLET THREE TIMES A DAY)
     Route: 048
     Dates: start: 2016, end: 201811
  4. SKELAXIN [Suspect]
     Active Substance: METAXALONE
     Indication: NERVE INJURY

REACTIONS (4)
  - Product use in unapproved indication [Unknown]
  - Gastroenteritis viral [Recovering/Resolving]
  - Gait disturbance [Unknown]
  - Decreased activity [Unknown]

NARRATIVE: CASE EVENT DATE: 2016
